FAERS Safety Report 10703708 (Version 16)
Quarter: 2022Q2

REPORT INFORMATION
  Report Type: Other
  Country: CA (occurrence: None)
  Receive Date: 20150112
  Receipt Date: 20220419
  Transmission Date: 20220721
  Serious: Yes (Hospitalization, Other)
  Sender: FDA-Public Use
  Company Number: CA-ROCHE-1136281

PATIENT
  Sex: Female
  Weight: 105.2 kg

DRUGS (26)
  1. RITUXAN [Suspect]
     Active Substance: RITUXIMAB
     Indication: Rheumatoid arthritis
     Dosage: PREVIOUS RITUXIMAB DOSE WAS ON 15/JUN/2017.?PREVIOUS RITUXIMAB DOSE WAS ON 28/AUG/2018
     Route: 042
     Dates: start: 20101014
  2. RITUXAN [Suspect]
     Active Substance: RITUXIMAB
     Indication: Myasthenia gravis
     Route: 042
     Dates: start: 20110504
  3. RITUXAN [Suspect]
     Active Substance: RITUXIMAB
     Route: 042
     Dates: start: 20120926
  4. RITUXAN [Suspect]
     Active Substance: RITUXIMAB
     Dosage: LAST INFUSION ON 11/JUL/2014
     Route: 042
     Dates: start: 20130530
  5. RITUXAN [Suspect]
     Active Substance: RITUXIMAB
     Route: 042
     Dates: start: 20150114
  6. RITUXAN [Suspect]
     Active Substance: RITUXIMAB
     Route: 042
     Dates: start: 20150821
  7. RITUXAN [Suspect]
     Active Substance: RITUXIMAB
     Route: 042
     Dates: start: 20170601
  8. RITUXAN [Suspect]
     Active Substance: RITUXIMAB
     Dosage: FOUR DOSES PER COURSE. NO PIRS AVAILABLE SINCE 15/JUN/2017
     Route: 042
     Dates: start: 20170601
  9. RITUXAN [Suspect]
     Active Substance: RITUXIMAB
     Dosage: Q 6MONTHS
     Route: 042
     Dates: start: 20220405, end: 20220405
  10. METFORMIN [Suspect]
     Active Substance: METFORMIN HYDROCHLORIDE
     Indication: Diabetes mellitus
     Route: 048
     Dates: start: 2012, end: 2012
  11. MESTINON [Suspect]
     Active Substance: PYRIDOSTIGMINE BROMIDE
     Indication: Product used for unknown indication
     Route: 065
     Dates: end: 2012
  12. LORAZEPAM [Concomitant]
     Active Substance: LORAZEPAM
  13. FOLIC ACID [Concomitant]
     Active Substance: FOLIC ACID
  14. VITAMIN B6 [Concomitant]
     Active Substance: PYRIDOXINE HYDROCHLORIDE
  15. PROGESTERONE [Concomitant]
     Active Substance: PROGESTERONE
  16. TESTOSTERONE [Concomitant]
     Active Substance: TESTOSTERONE
  17. ESTROGEL [Concomitant]
     Active Substance: ESTRADIOL
  18. CLONAZEPAM [Concomitant]
     Active Substance: CLONAZEPAM
  19. DIPHENHYDRAMINE HYDROCHLORIDE [Concomitant]
     Active Substance: DIPHENHYDRAMINE HYDROCHLORIDE
     Indication: Premedication
     Route: 048
     Dates: start: 20110504
  20. DIPHENHYDRAMINE HYDROCHLORIDE [Concomitant]
     Active Substance: DIPHENHYDRAMINE HYDROCHLORIDE
     Route: 048
     Dates: start: 20220405, end: 20220405
  21. ACETAMINOPHEN [Concomitant]
     Active Substance: ACETAMINOPHEN
     Indication: Premedication
     Route: 048
     Dates: start: 20110504
  22. ACETAMINOPHEN [Concomitant]
     Active Substance: ACETAMINOPHEN
     Route: 048
     Dates: start: 20220405, end: 20220405
  23. METHYLPREDNISOLONE [Concomitant]
     Active Substance: METHYLPREDNISOLONE
     Indication: Premedication
     Route: 042
     Dates: start: 20110504
  24. METHYLPREDNISOLONE [Concomitant]
     Active Substance: METHYLPREDNISOLONE
     Route: 042
     Dates: start: 20220405, end: 20220405
  25. METHOTREXATE [Concomitant]
     Active Substance: METHOTREXATE
  26. INSULIN NOS [Concomitant]
     Active Substance: INSULIN NOS

REACTIONS (37)
  - Pain [Not Recovered/Not Resolved]
  - Myasthenia gravis [Not Recovered/Not Resolved]
  - Meningitis [Unknown]
  - Dyspnoea [Unknown]
  - Diabetes mellitus [Unknown]
  - Unevaluable event [Unknown]
  - Myasthenia gravis [Unknown]
  - Influenza [Unknown]
  - Optic neuropathy [Recovering/Resolving]
  - Diabetes mellitus inadequate control [Not Recovered/Not Resolved]
  - Hepatic steatosis [Not Recovered/Not Resolved]
  - Fall [Recovered/Resolved]
  - Hordeolum [Unknown]
  - Stress [Not Recovered/Not Resolved]
  - Weight increased [Recovering/Resolving]
  - Solar lentigo [Recovered/Resolved]
  - Arthritis [Not Recovered/Not Resolved]
  - Headache [Unknown]
  - Insomnia [Unknown]
  - Throat irritation [Recovering/Resolving]
  - Fibromyalgia [Unknown]
  - Pain [Not Recovered/Not Resolved]
  - Malaise [Unknown]
  - Drug ineffective [Unknown]
  - Drug intolerance [Unknown]
  - Weight increased [Not Recovered/Not Resolved]
  - Wrist fracture [Unknown]
  - Upper limb fracture [Unknown]
  - Fall [Unknown]
  - Asthenia [Unknown]
  - Off label use [Unknown]
  - Contusion [Recovered/Resolved]
  - Arthralgia [Not Recovered/Not Resolved]
  - Myocardial necrosis marker increased [Recovered/Resolved]
  - Balance disorder [Unknown]
  - Asthenia [Unknown]
  - Dizziness [Unknown]

NARRATIVE: CASE EVENT DATE: 20120101
